FAERS Safety Report 5652999-3 (Version None)
Quarter: 2008Q1

REPORT INFORMATION
  Report Type: 
  Country: None (occurrence: None)
  Receive Date: 20080131
  Receipt Date: 20071003
  Transmission Date: 20080703
  Serious: No
  Sender: FDA-Public Use
  Company Number: US200710001209

PATIENT
  Age: 74 Year
  Sex: Female
  Weight: 105.2 kg

DRUGS (2)
  1. BYETTA [Suspect]
     Indication: WEIGHT DECREASED
     Dosage: 5 UG, 2/D, SUBCUTANEOUS
     Route: 058
     Dates: start: 20070901, end: 20070901
  2. GLUCOPHAGE [Concomitant]

REACTIONS (6)
  - BLOOD GLUCOSE DECREASED [None]
  - GASTROOESOPHAGEAL REFLUX DISEASE [None]
  - PRESYNCOPE [None]
  - STOMACH DISCOMFORT [None]
  - WAIST CIRCUMFERENCE INCREASED [None]
  - WEIGHT DECREASED [None]
